FAERS Safety Report 26019340 (Version 1)
Quarter: 2025Q4

REPORT INFORMATION
  Report Type: Spontaneous
  Country: US (occurrence: US)
  Receive Date: 20251110
  Receipt Date: 20251110
  Transmission Date: 20260117
  Serious: Yes (Hospitalization, Other)
  Sender: CIPLA
  Company Number: US-CIPLA LTD.-2025US14152

PATIENT

DRUGS (1)
  1. PHENTERMINE [Suspect]
     Active Substance: PHENTERMINE
     Dosage: 1875 MILLIGRAM, SINGLE (50 TABS OF 37.5 MG PHENTERMINE)
     Route: 048

REACTIONS (7)
  - Toxicity to various agents [Unknown]
  - Agitation [Recovered/Resolved]
  - Hallucination, visual [Unknown]
  - Intentional overdose [Unknown]
  - Vomiting [Unknown]
  - Tachycardia [Unknown]
  - Hypertension [Unknown]
